FAERS Safety Report 18727081 (Version 1)
Quarter: 2021Q1

REPORT INFORMATION
  Report Type: Spontaneous
  Country: ES (occurrence: ES)
  Receive Date: 20210112
  Receipt Date: 20210112
  Transmission Date: 20210419
  Serious: Yes (Other)
  Sender: FDA-Public Use
  Company Number: ES-009507513-2101ESP004486

PATIENT
  Sex: Male

DRUGS (2)
  1. SINEMET PLUS 25/100 MG COMPRIMIDOS [Suspect]
     Active Substance: CARBIDOPA\LEVODOPA
     Dosage: ONE THREE TIMES A DAY
     Route: 048
  2. SINEMET PLUS 25/100 MG COMPRIMIDOS [Suspect]
     Active Substance: CARBIDOPA\LEVODOPA
     Dosage: STARTED WITH HALF
     Route: 048

REACTIONS (3)
  - Insomnia [Unknown]
  - Contraindicated product administered [Unknown]
  - Cerebrovascular accident [Unknown]
